FAERS Safety Report 6242606-3 (Version None)
Quarter: 2009Q2

REPORT INFORMATION
  Report Type: 
  Country: None (occurrence: None)
  Receive Date: 20090622
  Receipt Date: 20090622
  Transmission Date: 20091009
  Serious: No
  Sender: FDA-Public Use
  Company Number: None

PATIENT
  Age: 55 Year
  Sex: Male
  Weight: 79.3795 kg

DRUGS (1)
  1. ZICAM COLD REMEDY NASAL GEL .50 FL.OZ/15ML  ZICAM HOMEOPATHIC [Suspect]
     Indication: NASOPHARYNGITIS
     Dosage: NASAL SPRAY 1 NASAL; NASAL SPRAY 2 NASAL
     Route: 045

REACTIONS (3)
  - ANOSMIA [None]
  - HYPOSMIA [None]
  - PRODUCT QUALITY ISSUE [None]
